FAERS Safety Report 16966469 (Version 1)
Quarter: 2019Q4

REPORT INFORMATION
  Report Type: Spontaneous
  Country: US (occurrence: US)
  Receive Date: 20191028
  Receipt Date: 20191028
  Transmission Date: 20200122
  Serious: No
  Sender: FDA-Public Use
  Company Number: US-ELI_LILLY_AND_COMPANY-US201910009945

PATIENT
  Sex: Female

DRUGS (1)
  1. HUMALOG MIX75/25 [Suspect]
     Active Substance: INSULIN LISPRO
     Indication: TYPE 2 DIABETES MELLITUS
     Dosage: 16 U, DAILY
     Route: 065
     Dates: start: 2006, end: 2011

REACTIONS (2)
  - Hypoacusis [Unknown]
  - Confusional state [Unknown]

NARRATIVE: CASE EVENT DATE: 2017
